FAERS Safety Report 5227344-8 (Version None)
Quarter: 2007Q1

REPORT INFORMATION
  Report Type: 
  Country: None (occurrence: None)
  Receive Date: 20070202
  Receipt Date: 20070124
  Transmission Date: 20070707
  Serious: Yes (Hospitalization, Disabling)
  Sender: FDA-Public Use
  Company Number: JP-MERCK-0701USA03465

PATIENT
  Age: 79 Year
  Sex: Male

DRUGS (1)
  1. HYZAAR [Suspect]
     Indication: HYPERTENSION
     Route: 048
     Dates: start: 20061201, end: 20070109

REACTIONS (2)
  - BILE DUCT STONE [None]
  - HEPATIC FUNCTION ABNORMAL [None]
